FAERS Safety Report 16952765 (Version 1)
Quarter: 2019Q4

REPORT INFORMATION
  Report Type: Spontaneous
  Country: CA (occurrence: CA)
  Receive Date: 20191023
  Receipt Date: 20191023
  Transmission Date: 20200122
  Serious: Yes (Other)
  Sender: FDA-Public Use
  Company Number: CA-PFIZER INC-2019454557

PATIENT
  Age: 44 Year
  Sex: Female

DRUGS (6)
  1. CELEBREX [Suspect]
     Active Substance: CELECOXIB
     Dosage: UNK
     Route: 048
  2. PRIMIDONE. [Concomitant]
     Active Substance: PRIMIDONE
     Dosage: UNK
     Route: 048
  3. DILANTIN INFATABS [Suspect]
     Active Substance: PHENYTOIN
     Dosage: 150 MG, 2X/DAY
     Route: 048
  4. MOBICOX [Suspect]
     Active Substance: MELOXICAM
     Dosage: UNK
     Route: 048
  5. NAPROXEN. [Suspect]
     Active Substance: NAPROXEN
     Dosage: UNK
     Route: 048
  6. CONJUGATED ESTROGENS [Concomitant]
     Active Substance: ESTROGENS, CONJUGATED
     Dosage: UNK
     Route: 048

REACTIONS (4)
  - Visual impairment [Unknown]
  - Drug level increased [Unknown]
  - Seizure [Unknown]
  - Confusional state [Unknown]
